FAERS Safety Report 15592922 (Version 4)
Quarter: 2018Q4

REPORT INFORMATION
  Report Type: Spontaneous
  Country: PL (occurrence: PL)
  Receive Date: 20181106
  Receipt Date: 20181211
  Transmission Date: 20190205
  Serious: Yes (Hospitalization, Other)
  Sender: FDA-Public Use
  Company Number: PHHY2018PL147578

PATIENT
  Age: 71 Year
  Sex: Male

DRUGS (3)
  1. ATORVASTATIN [Suspect]
     Active Substance: ATORVASTATIN
     Indication: PRODUCT USED FOR UNKNOWN INDICATION
     Dosage: 20 MG, QD (CHRONICALLY)
     Route: 065
  2. PREDNISONE. [Concomitant]
     Active Substance: PREDNISONE
     Indication: PRODUCT USED FOR UNKNOWN INDICATION
     Dosage: 1 MG/KG, UNK
     Route: 065
  3. AZATHIOPRINE. [Concomitant]
     Active Substance: AZATHIOPRINE
     Indication: PRODUCT USED FOR UNKNOWN INDICATION
     Dosage: 100 MG, QD
     Route: 065

REACTIONS (10)
  - Monoparesis [Recovering/Resolving]
  - Aspartate aminotransferase increased [Recovering/Resolving]
  - Myositis [Recovering/Resolving]
  - Muscular weakness [Recovering/Resolving]
  - Bladder cancer [Recovered/Resolved]
  - Paresis [Unknown]
  - Immune-mediated necrotising myopathy [Recovered/Resolved with Sequelae]
  - Alanine aminotransferase increased [Recovering/Resolving]
  - Myalgia [Recovering/Resolving]
  - Myopathy [Unknown]
